FAERS Safety Report 7299091-2 (Version None)
Quarter: 2011Q1

REPORT INFORMATION
  Report Type: 
  Country: None (occurrence: None)
  Receive Date: 20101228
  Receipt Date: 20100706
  Transmission Date: 20110831
  Serious: Yes (Other)
  Sender: FDA-Public Use
  Company Number: IMP_05059_2010

PATIENT
  Age: 75 Year
  Sex: Female
  Weight: 64.4108 kg

DRUGS (1)
  1. COLESTIPOL HYDROCHLORIDE [Suspect]
     Indication: DIARRHOEA
     Dosage: DF

REACTIONS (3)
  - FOREIGN BODY [None]
  - PRODUCT QUALITY ISSUE [None]
  - OFF LABEL USE [None]
